FAERS Safety Report 13578864 (Version 2)
Quarter: 2017Q3

REPORT INFORMATION
  Report Type: Report from Study
  Country: US (occurrence: US)
  Receive Date: 20170524
  Receipt Date: 20170831
  Transmission Date: 20171127
  Serious: Yes (Other)
  Sender: FDA-Public Use
  Company Number: US-JAZZ-2017-US-004822

PATIENT
  Sex: Female

DRUGS (6)
  1. XYREM [Suspect]
     Active Substance: SODIUM OXYBATE
     Dosage: 2.25 G, QD
     Route: 048
     Dates: start: 201703
  2. XYREM [Suspect]
     Active Substance: SODIUM OXYBATE
     Dosage: 4.5 G, QD
     Route: 048
     Dates: start: 201703
  3. XYREM [Suspect]
     Active Substance: SODIUM OXYBATE
     Dosage: 1 G, QD
     Route: 048
     Dates: start: 201702, end: 201703
  4. XYREM [Suspect]
     Active Substance: SODIUM OXYBATE
     Dosage: 2.75 G, QD
     Route: 048
     Dates: start: 2017
  5. XYREM [Suspect]
     Active Substance: SODIUM OXYBATE
     Dosage: 1 G, QD
     Route: 048
     Dates: start: 2017
  6. XYREM [Suspect]
     Active Substance: SODIUM OXYBATE
     Indication: NARCOLEPSY
     Dosage: 2.25 G, QD
     Route: 048
     Dates: start: 201702, end: 201703

REACTIONS (8)
  - Feeling hot [Unknown]
  - Vomiting [Unknown]
  - Feeling abnormal [Unknown]
  - Hunger [Unknown]
  - Weight decreased [Not Recovered/Not Resolved]
  - Malaise [Unknown]
  - Incorrect dose administered [Unknown]
  - Blood insulin abnormal [Recovering/Resolving]

NARRATIVE: CASE EVENT DATE: 2017
